FAERS Safety Report 21597754 (Version 1)
Quarter: 2022Q4

REPORT INFORMATION
  Report Type: Spontaneous
  Country: US (occurrence: None)
  Receive Date: 20221114
  Receipt Date: 20221114
  Transmission Date: 20230113
  Serious: Yes (Other)
  Sender: FDA-Public Use
  Company Number: None

PATIENT
  Age: 60 Year
  Sex: Male
  Weight: 71.1 kg

DRUGS (2)
  1. MOUNJARO [Suspect]
     Active Substance: TIRZEPATIDE
     Indication: Type 2 diabetes mellitus
     Dosage: OTHER FREQUENCY : ONCE A WEEK PEN IN;?OTHER ROUTE : PEN INJECTION;?
     Route: 050
     Dates: start: 20221001, end: 20221107
  2. DIABETIC SUPPLEMENTS [Concomitant]

REACTIONS (13)
  - Headache [None]
  - Fatigue [None]
  - Fatigue [None]
  - Flatulence [None]
  - Abdominal distension [None]
  - Eructation [None]
  - Nausea [None]
  - Diarrhoea [None]
  - Blood glucose decreased [None]
  - Weight decreased [None]
  - Malaise [None]
  - Eating disorder [None]
  - Food poisoning [None]

NARRATIVE: CASE EVENT DATE: 20221107
